FAERS Safety Report 7480427-4 (Version None)
Quarter: 2011Q2

REPORT INFORMATION
  Report Type: 
  Country: None (occurrence: None)
  Receive Date: 20110512
  Receipt Date: 20110512
  Transmission Date: 20111010
  Serious: Yes (Life-Threatening, Hospitalization)
  Sender: FDA-Public Use
  Company Number: None

PATIENT
  Age: 56 Year
  Sex: Male
  Weight: 127.3 kg

DRUGS (2)
  1. FENTANYL [Suspect]
     Indication: SURGERY
     Dosage: 150 MCG ONCE IV
     Route: 042
     Dates: start: 20110217, end: 20110217
  2. MIDAZOLAM HCL [Suspect]
     Indication: SURGERY
     Dates: start: 20110217, end: 20110217

REACTIONS (3)
  - PALPITATIONS [None]
  - HYPOTENSION [None]
  - PULSELESS ELECTRICAL ACTIVITY [None]
